FAERS Safety Report 8398082-8 (Version None)
Quarter: 2012Q2

REPORT INFORMATION
  Report Type: 
  Country: None (occurrence: None)
  Receive Date: 20120524
  Receipt Date: 20120515
  Transmission Date: 20120825
  Serious: Yes (Hospitalization)
  Sender: FDA-Public Use
  Company Number: WAES 1205USA02474

PATIENT
  Age: 73 Year
  Sex: Male
  Weight: 85.7298 kg

DRUGS (15)
  1. LISINOPRIL [Concomitant]
  2. ANDROGEL [Concomitant]
  3. PRILOSEC [Concomitant]
  4. FLOMAX [Concomitant]
  5. OMEGA-3 MARINE TRIGLYCERIDES [Concomitant]
  6. SENNA-MINT WAF [Concomitant]
  7. DECADRON [Suspect]
     Indication: BACK PAIN
     Dosage: 4 MG/BID/PO
     Route: 048
     Dates: start: 20111207
  8. DECADRON [Suspect]
     Indication: METASTASES TO CENTRAL NERVOUS SYSTEM
     Dosage: 4 MG/BID/PO
     Route: 048
     Dates: start: 20111207
  9. CRIZOTINIB [Suspect]
     Indication: NON-SMALL CELL LUNG CANCER
     Dosage: 200 MG/BID/PO
     Route: 048
     Dates: start: 20101019, end: 20111212
  10. MULTI-VITAMINS [Concomitant]
  11. LIDODERM [Concomitant]
  12. OXYCONTIN [Concomitant]
  13. MAGNESIA [Concomitant]
  14. VALIUM [Concomitant]
  15. ZOFRAN [Concomitant]

REACTIONS (15)
  - EAR PAIN [None]
  - ASTHENIA [None]
  - DELIRIUM [None]
  - DECREASED ACTIVITY [None]
  - FATIGUE [None]
  - BONE NEOPLASM MALIGNANT [None]
  - PNEUMONIA [None]
  - RENAL FAILURE ACUTE [None]
  - HYPOPHAGIA [None]
  - ODYNOPHAGIA [None]
  - FAILURE TO THRIVE [None]
  - MOUTH ULCERATION [None]
  - HYPOVOLAEMIA [None]
  - THROMBOCYTOPENIA [None]
  - METASTATIC NEOPLASM [None]
